FAERS Safety Report 4430531-X (Version None)
Quarter: 2004Q3

REPORT INFORMATION
  Report Type: 
  Country: None (occurrence: None)
  Receive Date: 20040818
  Receipt Date: 20040803
  Transmission Date: 20050211
  Serious: Yes (Hospitalization)
  Sender: FDA-Public Use
  Company Number: FR_040804568

PATIENT
  Age: 44 Year
  Sex: Female

DRUGS (4)
  1. ZYPREXA [Suspect]
     Indication: SCHIZOPHRENIA
     Dosage: 10 MG/1 DAY
     Dates: start: 20040129, end: 20040229
  2. ZOPLICONE [Concomitant]
  3. DIAZEPAM [Concomitant]
  4. PAROXETINE HCL [Concomitant]

REACTIONS (10)
  - AV DISSOCIATION [None]
  - HYPOTENSION [None]
  - LOSS OF CONSCIOUSNESS [None]
  - MALAISE [None]
  - NODAL ARRHYTHMIA [None]
  - RENAL FAILURE [None]
  - SINUS BRADYCARDIA [None]
  - TRICUSPID VALVE INCOMPETENCE [None]
  - VERTIGO [None]
  - VISION BLURRED [None]
